FAERS Safety Report 17539372 (Version 1)
Quarter: 2020Q1

REPORT INFORMATION
  Report Type: Spontaneous
  Country: US (occurrence: US)
  Receive Date: 20200313
  Receipt Date: 20200313
  Transmission Date: 20200409
  Serious: No
  Sender: FDA-Public Use
  Company Number: US-PFIZER INC-2020108033

PATIENT
  Age: 71 Year
  Sex: Female
  Weight: 86.18 kg

DRUGS (1)
  1. PREGABALIN. [Suspect]
     Active Substance: PREGABALIN
     Dosage: UNK

REACTIONS (4)
  - Aphasia [Unknown]
  - Product taste abnormal [Unknown]
  - Feeling abnormal [Unknown]
  - Mental status changes [Unknown]
